FAERS Safety Report 7529003-5 (Version None)
Quarter: 2011Q2

REPORT INFORMATION
  Report Type: 
  Country: None (occurrence: None)
  Receive Date: 20110607
  Receipt Date: 20110524
  Transmission Date: 20111010
  Serious: Yes (Hospitalization)
  Sender: FDA-Public Use
  Company Number: FR-CELGENEUS-056-50794-11053080

PATIENT
  Age: 50 Year

DRUGS (2)
  1. VIDAZA [Suspect]
     Dosage: 175 MG/DAY
     Route: 050
     Dates: start: 20100201
  2. ZOFRAN [Concomitant]
     Indication: ANTIEMETIC SUPPORTIVE CARE
     Dosage: 16 MILLIGRAM
     Route: 065

REACTIONS (3)
  - MYOCARDITIS [None]
  - NEOPLASM PROGRESSION [None]
  - REFRACTORY ANAEMIA WITH AN EXCESS OF BLASTS [None]
